FAERS Safety Report 7044815-2 (Version None)
Quarter: 2010Q4

REPORT INFORMATION
  Report Type: 
  Country: None (occurrence: None)
  Receive Date: 20101014
  Receipt Date: 20100930
  Transmission Date: 20110411
  Serious: No
  Sender: FDA-Public Use
  Company Number: PHHY2010US65391

PATIENT

DRUGS (1)
  1. TASIGNA [Suspect]

REACTIONS (2)
  - LABELLED DRUG-FOOD INTERACTION MEDICATION ERROR [None]
  - MALAISE [None]
